FAERS Safety Report 9735345 (Version 1)
Quarter: 2013Q4

REPORT INFORMATION
  Report Type: Spontaneous
  Country: GR (occurrence: None)
  Receive Date: 20131204
  Receipt Date: 20131204
  Transmission Date: 20140711
  Serious: Yes (Death, Hospitalization)
  Sender: FDA-Public Use
  Company Number: COL_14794_2013

PATIENT
  Age: 68 Year
  Sex: Female

DRUGS (1)
  1. DURAPHAT 5000 [Suspect]
     Indication: PRODUCT USED FOR UNKNOWN INDICATION
     Route: 048
     Dates: start: 201305, end: 201305

REACTIONS (1)
  - Pulmonary oedema [None]
